FAERS Safety Report 23369451 (Version 1)
Quarter: 2024Q1

REPORT INFORMATION
  Report Type: Spontaneous
  Country: DE (occurrence: DE)
  Receive Date: 20240105
  Receipt Date: 20240105
  Transmission Date: 20240410
  Serious: Yes (Other)
  Sender: FDA-Public Use
  Company Number: DE-BFARM-23007005

PATIENT
  Age: 32 Year
  Sex: Female

DRUGS (9)
  1. VENLAFAXINE [Suspect]
     Active Substance: VENLAFAXINE HYDROCHLORIDE
     Indication: Product used for unknown indication
     Dosage: FOR WEEKS
     Route: 048
  2. VENLAFAXINE [Suspect]
     Active Substance: VENLAFAXINE HYDROCHLORIDE
     Dosage: B.A.W.
     Route: 048
  3. VENLAFAXINE [Suspect]
     Active Substance: VENLAFAXINE HYDROCHLORIDE
     Dosage: 225 MILLIGRAM, DAILY
     Route: 048
  4. DESOGESTREL [Suspect]
     Active Substance: DESOGESTREL
     Indication: Contraception
     Dosage: FOR YEARS
     Route: 048
  5. Ferro sanol duodenal 100mg hard capsules [Concomitant]
     Indication: Iron deficiency anaemia
     Dosage: FOR A LONG TIME B.A.W.
     Route: 048
  6. PIPAMPERONE HYDROCHLORIDE [Concomitant]
     Active Substance: PIPAMPERONE HYDROCHLORIDE
     Indication: Product used for unknown indication
     Dosage: 20 MILLIGRAM, DAILY
     Route: 048
  7. PIPAMPERONE HYDROCHLORIDE [Concomitant]
     Active Substance: PIPAMPERONE HYDROCHLORIDE
     Dosage: SEIT WOCHEN
     Route: 048
  8. RAMIPRIL [Concomitant]
     Active Substance: RAMIPRIL
     Indication: Drug therapy
     Dosage: FOR A LONG TIME B.A.W.
     Route: 048
  9. PANTOPRAZOLE SODIUM [Concomitant]
     Active Substance: PANTOPRAZOLE SODIUM
     Indication: Abdominal discomfort
     Dosage: FOR A LONG TIME B.A.W.
     Route: 048

REACTIONS (2)
  - Menstrual disorder [Unknown]
  - Heavy menstrual bleeding [Recovering/Resolving]

NARRATIVE: CASE EVENT DATE: 20230417
